FAERS Safety Report 4480617-9 (Version None)
Quarter: 2004Q4

REPORT INFORMATION
  Report Type: 
  Country: None (occurrence: None)
  Receive Date: 20041019
  Receipt Date: 20041007
  Transmission Date: 20050328
  Serious: Yes (Other)
  Sender: FDA-Public Use
  Company Number: 2004076131

PATIENT
  Age: 77 Year
  Sex: Female
  Weight: 60 kg

DRUGS (3)
  1. NEURONTIN [Suspect]
     Indication: POST HERPETIC NEURALGIA
     Dosage: 3000 MG, ORAL
     Route: 048
     Dates: start: 20040616, end: 20040727
  2. METAMIZOLE SODIUM (METAMIZOLE SODIUM) [Suspect]
     Indication: POST HERPETIC NEURALGIA
     Dosage: 120 DROP, ORAL
     Route: 048
     Dates: start: 20040702, end: 20040721
  3. AZATHIOPRINE [Suspect]
     Indication: MYASTHENIA GRAVIS
     Dosage: 150 MG, ORAL
     Route: 048
     Dates: start: 20040301, end: 20040701

REACTIONS (2)
  - BONE MARROW DEPRESSION [None]
  - BONE MARROW TOXICITY [None]
